FAERS Safety Report 10237611 (Version 3)
Quarter: 2015Q1

REPORT INFORMATION
  Report Type: Spontaneous
  Country: CH (occurrence: CH)
  Receive Date: 20140616
  Receipt Date: 20150313
  Transmission Date: 20150720
  Serious: Yes (Other)
  Sender: FDA-Public Use
  Company Number: CH-AMGEN INC.-CHESP2014044232

PATIENT
  Age: 42 Year
  Sex: Male
  Weight: 72 kg

DRUGS (1)
  1. ENBREL [Suspect]
     Active Substance: ETANERCEPT
     Indication: PSORIASIS
     Dosage: 50 MG, WEEKLY
     Route: 058
     Dates: start: 20131202

REACTIONS (4)
  - Pallor [Unknown]
  - Paraesthesia [Unknown]
  - Nephrolithiasis [Recovered/Resolved]
  - Erythromelalgia [Recovered/Resolved]

NARRATIVE: CASE EVENT DATE: 201405
